FAERS Safety Report 6204190-X (Version None)
Quarter: 2009Q2

REPORT INFORMATION
  Report Type: 
  Country: None (occurrence: None)
  Receive Date: 20090526
  Receipt Date: 20090526
  Transmission Date: 20091009
  Serious: Yes (Hospitalization)
  Sender: FDA-Public Use
  Company Number: None

PATIENT
  Age: 58 Year
  Sex: Male
  Weight: 105.7 kg

DRUGS (2)
  1. CISPLATIN [Suspect]
     Indication: BLADDER CANCER
     Dosage: 154MG DAY 1 IV
     Route: 042
     Dates: start: 20090508, end: 20090508
  2. GEMCITABINE [Suspect]
     Indication: BLADDER CANCER
     Dosage: 2200MG DAY 1, DAY 8, DAY IV 30 MIN DAY AND DAY 15
     Route: 042
     Dates: start: 20090508, end: 20090515

REACTIONS (7)
  - ASTHENIA [None]
  - BODY TEMPERATURE INCREASED [None]
  - HYPONATRAEMIA [None]
  - PALATAL DISORDER [None]
  - RASH MACULO-PAPULAR [None]
  - STOMATITIS [None]
  - SYNCOPE [None]
